FAERS Safety Report 5367690-0 (Version None)
Quarter: 2007Q2

REPORT INFORMATION
  Report Type: 
  Country: None (occurrence: None)
  Receive Date: 20070622
  Receipt Date: 20070328
  Transmission Date: 20071010
  Serious: No
  Sender: FDA-Public Use
  Company Number: US-ASTRAZENECA-2007UW06274

PATIENT
  Age: 9 Month
  Sex: Female
  Weight: 11.8 kg

DRUGS (2)
  1. PULMICORT RESPULES [Suspect]
     Indication: WHEEZING
     Route: 055
  2. ALBUTEROL [Concomitant]

REACTIONS (1)
  - SOMNOLENCE [None]
